FAERS Safety Report 10267767 (Version 1)
Quarter: 2014Q2

REPORT INFORMATION
  Report Type: Spontaneous
  Country: US (occurrence: None)
  Receive Date: 20140626
  Receipt Date: 20140626
  Transmission Date: 20141212
  Serious: Yes (Hospitalization)
  Sender: FDA-Public Use
  Company Number: None

PATIENT
  Age: 66 Year
  Sex: Male
  Weight: 86.1 kg

DRUGS (1)
  1. ROSUVASTATIN [Suspect]
     Indication: HYPERLIPIDAEMIA
     Dosage: MG EVERY DAY PO
     Route: 048
     Dates: start: 20100505, end: 20111108

REACTIONS (7)
  - Renal failure acute [None]
  - Rhabdomyolysis [None]
  - Pleural effusion [None]
  - Hyponatraemia [None]
  - Asterixis [None]
  - Aspartate aminotransferase increased [None]
  - Alanine aminotransferase increased [None]
